FAERS Safety Report 6102280-3 (Version None)
Quarter: 2009Q1

REPORT INFORMATION
  Report Type: 
  Country: None (occurrence: None)
  Receive Date: 20090304
  Receipt Date: 20090225
  Transmission Date: 20090719
  Serious: Yes (Hospitalization)
  Sender: FDA-Public Use
  Company Number: BE-ABBOTT-09P-013-0559116-00

PATIENT
  Age: 44 Year
  Sex: Female

DRUGS (2)
  1. REDUCTIL [Suspect]
     Indication: DRUG USE FOR UNKNOWN INDICATION
  2. FRAXIPARINE [Concomitant]
     Indication: PHLEBITIS

REACTIONS (2)
  - CEREBROVASCULAR ACCIDENT [None]
  - PHLEBITIS [None]
